FAERS Safety Report 8783816 (Version 2)
Quarter: 2012Q4

REPORT INFORMATION
  Report Type: 
  Country: US (occurrence: US)
  Receive Date: 20120913
  Receipt Date: 20121025
  Transmission Date: 20130627
  Serious: No
  Sender: FDA-Public Use
  Company Number: US-B.I. PHARMACEUTICALS,INC./RIDGEFIELD-2012-BP-22639BP

PATIENT
  Age: 80 Year
  Sex: Female
  Weight: 70.76 kg

DRUGS (8)
  1. SPIRIVA [Suspect]
     Indication: CHRONIC OBSTRUCTIVE PULMONARY DISEASE
     Dosage: 18 mcg
     Route: 055
     Dates: start: 20120718
  2. LISINOPRIL [Concomitant]
     Indication: HYPERTENSION
     Dosage: 20 mg
     Route: 048
     Dates: start: 2007
  3. METFORMIN [Concomitant]
     Dosage: 1000 mg
     Route: 048
     Dates: start: 2007
  4. FLUOXETINE [Concomitant]
     Indication: DEPRESSION
     Dosage: 20 mg
     Route: 048
     Dates: start: 1994
  5. SIMVASTATIN [Concomitant]
     Dosage: 20 mg
     Route: 048
     Dates: start: 2007
  6. LUMIGAN [Concomitant]
     Indication: GLAUCOMA
     Dates: start: 2007
  7. TOPROL XL [Concomitant]
  8. ZOCOR [Concomitant]

REACTIONS (3)
  - Sputum increased [Not Recovered/Not Resolved]
  - Cough [Not Recovered/Not Resolved]
  - Product quality issue [Not Recovered/Not Resolved]
